FAERS Safety Report 4496950-0 (Version None)
Quarter: 2004Q4

REPORT INFORMATION
  Report Type: 
  Country: None (occurrence: None)
  Receive Date: 20041109
  Receipt Date: 20041103
  Transmission Date: 20050328
  Serious: Yes (Hospitalization, Disabling)
  Sender: FDA-Public Use
  Company Number: DK-MERCK-0411DNK00011

PATIENT
  Age: 45 Year
  Sex: Male
  Weight: 100 kg

DRUGS (6)
  1. VIOXX [Suspect]
     Indication: PAIN
     Route: 048
     Dates: start: 20000310, end: 20020501
  2. CANDESARTAN CILEXETIL [Concomitant]
     Route: 048
     Dates: start: 19960101
  3. AMITRIPTYLINE HYDROCHLORIDE [Concomitant]
     Route: 048
     Dates: start: 19960101
  4. TRAMADOL HYDROCHLORIDE [Concomitant]
     Route: 048
     Dates: start: 19960101
  5. CARISOPRODOL [Concomitant]
     Route: 065
  6. ACETAMINOPHEN [Concomitant]
     Route: 048
     Dates: start: 19960101

REACTIONS (1)
  - ANGINA PECTORIS [None]
